FAERS Safety Report 9325013 (Version 1)
Quarter: 2013Q2

REPORT INFORMATION
  Report Type: Report from Study
  Country: VE (occurrence: VE)
  Receive Date: 20130603
  Receipt Date: 20130603
  Transmission Date: 20140414
  Serious: Yes (Other)
  Sender: FDA-Public Use
  Company Number: VE-ABBOTT-13P-178-1097731-00

PATIENT
  Age: 75 Year
  Sex: Female
  Weight: 52 kg

DRUGS (5)
  1. HUMIRA [Suspect]
     Indication: RHEUMATOID ARTHRITIS
     Route: 058
     Dates: start: 20100604, end: 201303
  2. HUMULIN N [Concomitant]
     Indication: DIABETES MELLITUS
     Dosage: 15 MG DAILY
     Route: 058
     Dates: start: 201304
  3. DIAMICRON [Concomitant]
     Indication: DIABETES MELLITUS
     Dosage: 60 MG DAILY
     Route: 048
     Dates: start: 201304
  4. LOSARTAN [Concomitant]
     Indication: HYPERTENSION
     Dosage: 160 MG DAILY
     Route: 048
  5. NATRILIX SR [Concomitant]
     Indication: HYPERTENSION
     Dosage: 1.5 MG DAILY
     Route: 048

REACTIONS (1)
  - Tuberculin test positive [Not Recovered/Not Resolved]
